FAERS Safety Report 6631610-9 (Version None)
Quarter: 2010Q1

REPORT INFORMATION
  Report Type: 
  Country: None (occurrence: None)
  Receive Date: 20100312
  Receipt Date: 20100302
  Transmission Date: 20100710
  Serious: Yes (Other)
  Sender: FDA-Public Use
  Company Number: PH-PFIZER INC-2010027025

PATIENT

DRUGS (1)
  1. UNASYN [Suspect]
     Indication: ANTIBIOTIC THERAPY

REACTIONS (1)
  - PATHOGEN RESISTANCE [None]
